FAERS Safety Report 4867755-3 (Version None)
Quarter: 2005Q4

REPORT INFORMATION
  Report Type: 
  Country: None (occurrence: None)
  Receive Date: 20051222
  Receipt Date: 20051222
  Transmission Date: 20060501
  Serious: Yes (Death)
  Sender: FDA-Public Use
  Company Number: None

PATIENT
  Sex: Male

DRUGS (3)
  1. GEMZAR [Suspect]
     Indication: PANCREATIC CARCINOMA
     Dosage: GEMZAR 1260 MG WEEKLY IV
     Route: 042
     Dates: start: 20050830, end: 20051206
  2. TAXOTERE [Suspect]
     Indication: PANCREATIC CARCINOMA
     Dosage: TAXOTERE 50 MG WEEKLY IV
     Route: 042
     Dates: start: 20050830, end: 20051206
  3. XELODA [Suspect]

REACTIONS (1)
  - INFECTION [None]
